FAERS Safety Report 7639931-8 (Version None)
Quarter: 2011Q3

REPORT INFORMATION
  Report Type: 
  Country: None (occurrence: None)
  Receive Date: 20110727
  Receipt Date: 20110722
  Transmission Date: 20111222
  Serious: Yes (Death, Hospitalization)
  Sender: FDA-Public Use
  Company Number: US-US-EMD SERONO, INC.-7071882

PATIENT
  Sex: Female

DRUGS (1)
  1. REBIF [Suspect]
     Indication: MULTIPLE SCLEROSIS
     Dates: start: 20070801, end: 20110501

REACTIONS (6)
  - HYPERTENSION [None]
  - ULCER [None]
  - METASTASES TO LUNG [None]
  - TACHYCARDIA [None]
  - METASTASES TO BREAST [None]
  - MULTIPLE SCLEROSIS [None]
